FAERS Safety Report 4337154-1 (Version None)
Quarter: 2004Q1

REPORT INFORMATION
  Report Type: 
  Country: None (occurrence: None)
  Receive Date: 20040329
  Receipt Date: 20040217
  Transmission Date: 20041129
  Serious: No
  Sender: FDA-Public Use
  Company Number: USA040259614

PATIENT
  Age: 42 Year
  Sex: Female
  Weight: 55 kg

DRUGS (2)
  1. STRATTERA [Suspect]
     Indication: ATTENTION DEFICIT/HYPERACTIVITY DISORDER
     Dosage: 80 MG/DAY
     Dates: start: 20031101, end: 20040213
  2. PROZAC [Suspect]
     Indication: BULIMIA NERVOSA
     Dosage: 40 MG/DAY
     Dates: start: 20031001

REACTIONS (4)
  - DRUG INEFFECTIVE [None]
  - EXCITABILITY [None]
  - FEELING ABNORMAL [None]
  - MOTION SICKNESS [None]
